FAERS Safety Report 4969393-0 (Version None)
Quarter: 2006Q2

REPORT INFORMATION
  Report Type: 
  Country: None (occurrence: None)
  Receive Date: 20060405
  Receipt Date: 20060327
  Transmission Date: 20061013
  Serious: Yes (Other)
  Sender: FDA-Public Use
  Company Number: 2006-DE-01612GD

PATIENT
  Sex: Female

DRUGS (4)
  1. PREDNISONE TAB [Suspect]
     Indication: HAEMANGIOMA CONGENITAL
     Dosage: SEE IMAGE
     Route: 048
  2. METHYLPREDNISOLONE [Suspect]
     Indication: HAEMANGIOMA CONGENITAL
     Dosage: 4 MG/KG, IV
     Route: 042
  3. INTERFERON ALPHA 2B (INTERFERON ALFA-2B) [Suspect]
     Indication: HAEMANGIOMA CONGENITAL
     Dosage: SC
     Route: 058
  4. VINCRISTINE [Suspect]
     Indication: HAEMANGIOMA CONGENITAL
     Dosage: IV
     Route: 042

REACTIONS (10)
  - CAROTID ARTERY STENOSIS [None]
  - CEREBRAL INFARCTION [None]
  - CONVULSION [None]
  - DEVELOPMENTAL COORDINATION DISORDER [None]
  - DISEASE PROGRESSION [None]
  - ENCEPHALOMALACIA [None]
  - HYPERTENSION [None]
  - ISCHAEMIC STROKE [None]
  - LIP ULCERATION [None]
  - TRANSAMINASES INCREASED [None]
